FAERS Safety Report 12447245 (Version 2)
Quarter: 2016Q2

REPORT INFORMATION
  Report Type: Spontaneous
  Country: CN (occurrence: CN)
  Receive Date: 20160608
  Receipt Date: 20160608
  Transmission Date: 20160815
  Serious: Yes (Hospitalization, Other)
  Sender: FDA-Public Use
  Company Number: PHHY2016CN078770

PATIENT
  Age: 48 Year
  Sex: Male

DRUGS (1)
  1. DICLOFENAC [Suspect]
     Active Substance: DICLOFENAC
     Indication: CONTUSION
     Dosage: 100 MG SINGLE DOSE (50 MG 2 TABLETS)
     Route: 048

REACTIONS (6)
  - Henoch-Schonlein purpura [Recovered/Resolved]
  - Hypersensitivity [Recovered/Resolved]
  - Hypoaesthesia [Recovered/Resolved]
  - Skin haemorrhage [Recovered/Resolved]
  - Pain [Recovered/Resolved]
  - Purpura [Recovered/Resolved]
